FAERS Safety Report 5645372-5 (Version None)
Quarter: 2008Q1

REPORT INFORMATION
  Report Type: 
  Country: None (occurrence: None)
  Receive Date: 20080229
  Receipt Date: 20080219
  Transmission Date: 20080703
  Serious: Yes (Disabling)
  Sender: FDA-Public Use
  Company Number: GB-MERCK-0802USA05813

PATIENT
  Age: 71 Year
  Sex: Female
  Weight: 65 kg

DRUGS (12)
  1. PRINIVIL [Suspect]
     Indication: HYPERTENSION
     Route: 048
     Dates: start: 20080201
  2. ASPIRIN [Concomitant]
     Indication: CARDIAC DISORDER
     Route: 048
     Dates: start: 20070301
  3. ATENOLOL [Concomitant]
     Indication: CARDIAC DISORDER
     Route: 048
     Dates: start: 20070301
  4. COZAAR [Concomitant]
     Indication: CARDIAC DISORDER
     Route: 048
     Dates: start: 20070301
  5. ACETAMINOPHEN AND CODEINE PHOSPHATE [Concomitant]
     Indication: PAIN
     Route: 048
     Dates: start: 20070301
  6. MOVELAT [Concomitant]
     Indication: PAIN
     Route: 061
     Dates: start: 20070301
  7. SCOPOLAMINE HYDROBROMIDE [Concomitant]
     Indication: ANGINA PECTORIS
     Route: 048
     Dates: start: 20070301
  8. LEVOTHYROXINE SODIUM [Concomitant]
     Indication: HYPOTHYROIDISM
     Route: 048
     Dates: start: 20070301
  9. PIZOTYLINE [Concomitant]
     Indication: MIGRAINE
     Route: 048
     Dates: start: 20070301
  10. SERTRALINE HYDROCHLORIDE [Concomitant]
     Indication: MOOD ALTERED
     Route: 048
     Dates: start: 20070301
  11. ZOCOR [Concomitant]
     Indication: BLOOD CHOLESTEROL INCREASED
     Route: 048
     Dates: start: 20070305
  12. ISOSORBIDE MONONITRATE [Concomitant]
     Indication: ANGINA PECTORIS
     Route: 048
     Dates: start: 20070518

REACTIONS (3)
  - HYPERSENSITIVITY [None]
  - LIP SWELLING [None]
  - RASH PRURITIC [None]
